FAERS Safety Report 6107660-8 (Version None)
Quarter: 2009Q1

REPORT INFORMATION
  Report Type: 
  Country: None (occurrence: None)
  Receive Date: 20090309
  Receipt Date: 20090227
  Transmission Date: 20090719
  Serious: Yes (Life-Threatening, Hospitalization, Other)
  Sender: FDA-Public Use
  Company Number: DE-BAYER-200915049GPV

PATIENT
  Age: 30 Year
  Sex: Female
  Weight: 78 kg

DRUGS (1)
  1. ASPIRIN [Suspect]
     Indication: TOOTHACHE
     Route: 048
     Dates: start: 20081118, end: 20081120

REACTIONS (5)
  - DIZZINESS [None]
  - HEARING IMPAIRED [None]
  - NAUSEA [None]
  - TINNITUS [None]
  - VOMITING [None]
